FAERS Safety Report 4515043-7 (Version None)
Quarter: 2004Q4

REPORT INFORMATION
  Report Type: 
  Country: None (occurrence: None)
  Receive Date: 20041201
  Receipt Date: 20041119
  Transmission Date: 20050328
  Serious: Yes (Other)
  Sender: FDA-Public Use
  Company Number: PHBS2004JP15804

PATIENT
  Age: 52 Year
  Sex: Female

DRUGS (1)
  1. LAMISIL [Suspect]
     Indication: NAIL TINEA
     Dosage: 125 MG/D
     Route: 048
     Dates: start: 20041108, end: 20041114

REACTIONS (6)
  - EXANTHEM [None]
  - HYPOAESTHESIA ORAL [None]
  - MALAISE [None]
  - MUCOSAL EROSION [None]
  - RASH [None]
  - STEVENS-JOHNSON SYNDROME [None]
